FAERS Safety Report 8313482-X (Version None)
Quarter: 2012Q2

REPORT INFORMATION
  Report Type: 
  Country: None (occurrence: None)
  Receive Date: 20120426
  Receipt Date: 20120423
  Transmission Date: 20120825
  Serious: Yes (Other)
  Sender: FDA-Public Use
  Company Number: US-PFIZER INC-2012091008

PATIENT
  Age: 70 Year
  Sex: Female

DRUGS (4)
  1. NEURONTIN [Suspect]
     Dosage: UNK
     Dates: end: 20120101
  2. COREG [Suspect]
     Indication: HYPERTENSION
     Dosage: UNK
     Dates: end: 20120101
  3. NEURONTIN [Suspect]
     Dosage: 400 MG, UNK
  4. NEURONTIN [Suspect]
     Dosage: 300 MG, UNK
     Dates: end: 20120101

REACTIONS (7)
  - BLOOD GLUCOSE DECREASED [None]
  - MALAISE [None]
  - PAIN [None]
  - SOMNOLENCE [None]
  - TREMOR [None]
  - BLOOD PRESSURE INCREASED [None]
  - DIARRHOEA [None]
